FAERS Safety Report 8150250-6 (Version None)
Quarter: 2012Q1

REPORT INFORMATION
  Report Type: 
  Country: None (occurrence: None)
  Receive Date: 20120220
  Receipt Date: 20120215
  Transmission Date: 20120608
  Serious: Yes (Other)
  Sender: FDA-Public Use
  Company Number: US-PFIZER INC-2012041771

PATIENT
  Sex: Female

DRUGS (3)
  1. HUMALOG [Suspect]
     Dosage: UNK, 3X/DAY
  2. LIPITOR [Suspect]
     Dosage: 20 MG, QHS
     Route: 048
  3. LANTUS [Suspect]
     Dosage: UNK, QHS
     Route: 058

REACTIONS (1)
  - CEREBROVASCULAR ACCIDENT [None]
